FAERS Safety Report 13903467 (Version 5)
Quarter: 2018Q2

REPORT INFORMATION
  Report Type: Spontaneous
  Country: US (occurrence: US)
  Receive Date: 20170824
  Receipt Date: 20180509
  Transmission Date: 20180711
  Serious: No
  Sender: FDA-Public Use
  Company Number: US-PFIZER INC-2017364897

PATIENT
  Age: 72 Year
  Sex: Female
  Weight: 39.91 kg

DRUGS (3)
  1. IBRANCE [Suspect]
     Active Substance: PALBOCICLIB
     Dosage: UNK
     Route: 048
  2. IBRANCE [Suspect]
     Active Substance: PALBOCICLIB
     Indication: BREAST CANCER METASTATIC
     Dosage: 125 MG, CYCLIC (DAY 1-21 EVERY 28 DAYS (D1-D21 Q28 D))
     Route: 048
     Dates: start: 20170807
  3. IBRANCE [Suspect]
     Active Substance: PALBOCICLIB
     Dosage: 125 MG, CYCLIC (DAYS1-21 Q28 DAYS)
     Route: 048
     Dates: start: 20170807

REACTIONS (7)
  - Fatigue [Unknown]
  - Vomiting [Unknown]
  - Drug dose omission [Unknown]
  - Tongue disorder [Unknown]
  - Skin lesion [Unknown]
  - Intentional product misuse [Unknown]
  - Memory impairment [Unknown]

NARRATIVE: CASE EVENT DATE: 2017
